FAERS Safety Report 5827413-5 (Version None)
Quarter: 2008Q3

REPORT INFORMATION
  Report Type: 
  Country: None (occurrence: None)
  Receive Date: 20080725
  Receipt Date: 20080709
  Transmission Date: 20090109
  Serious: Yes (Other)
  Sender: FDA-Public Use
  Company Number: 2008BI018264

PATIENT
  Age: 44 Year
  Sex: Male

DRUGS (6)
  1. ZEVALIN [Suspect]
     Indication: NON-HODGKIN'S LYMPHOMA
     Dosage: 32 MCI: IV
     Route: 042
     Dates: start: 20080214, end: 20080214
  2. MABTHERA (CON.) [Concomitant]
  3. BCNU (CON.) [Concomitant]
  4. ETOPOSIDE (CON.) [Concomitant]
  5. CYTARABINE (CON.) [Concomitant]
  6. MELPHALAN (CON.) [Concomitant]

REACTIONS (12)
  - ABDOMINAL DISTENSION [None]
  - ABDOMINAL PAIN UPPER [None]
  - APLASIA [None]
  - CLOSTRIDIUM DIFFICILE TOXIN TEST POSITIVE [None]
  - DIARRHOEA [None]
  - ENTEROCOCCAL INFECTION [None]
  - ESCHERICHIA INFECTION [None]
  - HYPOPROTEINAEMIA [None]
  - PROTEIN TOTAL DECREASED [None]
  - PYREXIA [None]
  - STEM CELL TRANSPLANT [None]
  - WEIGHT DECREASED [None]
